FAERS Safety Report 8578197-1 (Version None)
Quarter: 2012Q3

REPORT INFORMATION
  Report Type: 
  Country: None (occurrence: None)
  Receive Date: 20120808
  Receipt Date: 20120803
  Transmission Date: 20120928
  Serious: No
  Sender: FDA-Public Use
  Company Number: US-PFIZER INC-2012189415

PATIENT
  Age: 71 Year
  Sex: Male
  Weight: 83.9 kg

DRUGS (2)
  1. ADVIL [Suspect]
     Indication: MUSCLE STRAIN
     Dosage: UNK
     Route: 048
     Dates: end: 20120701
  2. ADVIL [Suspect]
     Indication: LIMB DISCOMFORT

REACTIONS (2)
  - GLOSSODYNIA [None]
  - EXPIRED DRUG ADMINISTERED [None]
